FAERS Safety Report 19223216 (Version 1)
Quarter: 2021Q2

REPORT INFORMATION
  Report Type: Spontaneous
  Country: US (occurrence: US)
  Receive Date: 20210505
  Receipt Date: 20210505
  Transmission Date: 20210717
  Serious: No
  Sender: FDA-Public Use
  Company Number: US-ROCHE-2728593

PATIENT
  Sex: Female

DRUGS (9)
  1. ESBRIET [Suspect]
     Active Substance: PIRFENIDONE
     Indication: PULMONARY FIBROSIS
     Dosage: TAKE 3 TABLETS BY MOUTH THREE TIMES A DAY
     Route: 048
     Dates: start: 20190826
  2. AMLODIPINE BESYLATE. [Concomitant]
     Active Substance: AMLODIPINE BESYLATE
  3. CBD [Concomitant]
     Active Substance: CANNABIDIOL
     Dosage: KINGS PTC 4?3?9?1 %
  4. TYLENOL [Concomitant]
     Active Substance: ACETAMINOPHEN
  5. ZYRTEC [Concomitant]
     Active Substance: CETIRIZINE HYDROCHLORIDE
  6. OMEPRAZOLE. [Concomitant]
     Active Substance: OMEPRAZOLE
  7. SYNTHROID [Concomitant]
     Active Substance: LEVOTHYROXINE SODIUM
  8. CALCIUM [Concomitant]
     Active Substance: CALCIUM
  9. ASPIRIN. [Concomitant]
     Active Substance: ASPIRIN

REACTIONS (2)
  - No adverse event [Unknown]
  - Drug ineffective [Unknown]
